FAERS Safety Report 7637705-5 (Version None)
Quarter: 2011Q3

REPORT INFORMATION
  Report Type: 
  Country: None (occurrence: None)
  Receive Date: 20110726
  Receipt Date: 20090330
  Transmission Date: 20111222
  Serious: Yes (Other)
  Sender: FDA-Public Use
  Company Number: PHHY2009GB08851

PATIENT
  Sex: Female

DRUGS (3)
  1. CLOZAPINE [Suspect]
     Dosage: UNK
  2. ANTIHYPERTENSIVES [Concomitant]
     Indication: HYPERTENSION
  3. CLOZAPINE [Suspect]
     Indication: SCHIZOPHRENIA
     Dosage: UNK
     Route: 048
     Dates: start: 20030101, end: 20030304

REACTIONS (4)
  - WHITE BLOOD CELL COUNT INCREASED [None]
  - HYPERTENSION [None]
  - OROPHARYNGEAL PAIN [None]
  - PYREXIA [None]
